FAERS Safety Report 22279596 (Version 4)
Quarter: 2023Q2

REPORT INFORMATION
  Report Type: Spontaneous
  Country: TW (occurrence: TW)
  Receive Date: 20230503
  Receipt Date: 20230531
  Transmission Date: 20230721
  Serious: Yes (Hospitalization, Other)
  Sender: FDA-Public Use
  Company Number: TW-CHUGAI-2023015395

PATIENT
  Age: 72 Year
  Sex: Male
  Weight: 55 kg

DRUGS (11)
  1. ACTEMRA [Suspect]
     Active Substance: TOCILIZUMAB
     Indication: Rheumatoid arthritis
     Dosage: 162 MILLIGRAM, ONCE/2WEEKS
     Route: 058
     Dates: start: 20220413, end: 20220803
  2. ACTEMRA [Suspect]
     Active Substance: TOCILIZUMAB
     Dosage: 162 MILLIGRAM, ONCE/2WEEKS
     Route: 058
     Dates: end: 20230303
  3. PREDNISOLONE [Concomitant]
     Active Substance: PREDNISOLONE
     Indication: Rheumatoid arthritis
     Dosage: 5 MILLIGRAM, BID
     Route: 048
     Dates: start: 20230203
  4. GLIPIZIDE [Concomitant]
     Active Substance: GLIPIZIDE
     Indication: Diabetes mellitus
     Dosage: 5 MILLIGRAM, TID
     Route: 048
     Dates: start: 20221202
  5. ESOMEPRAZOLE MAGNESIUM [Concomitant]
     Active Substance: ESOMEPRAZOLE MAGNESIUM
     Indication: Prophylaxis
     Dosage: 1 TAB, QD
     Route: 048
     Dates: start: 20230303
  6. SILODOSIN [Concomitant]
     Active Substance: SILODOSIN
     Indication: Urethral obstruction
     Dosage: 4 MILLIGRAM, BID
     Route: 048
     Dates: start: 20221125
  7. TRACETON [Concomitant]
     Indication: Rheumatoid arthritis
     Dosage: 1 TAB, BID
     Route: 048
     Dates: start: 20221125
  8. PLAQUENIL [Concomitant]
     Active Substance: HYDROXYCHLOROQUINE SULFATE
     Dosage: 200 MILLIGRAM, QD
     Route: 048
     Dates: start: 20220608
  9. METHOTREXATE [Concomitant]
     Active Substance: METHOTREXATE
     Indication: Rheumatoid arthritis
     Dosage: 5 MILLIGRAM, ONCE/WEEK
     Route: 048
     Dates: start: 20220608
  10. MOSAPRIDE [Concomitant]
     Active Substance: MOSAPRIDE
     Indication: Prophylaxis
     Dosage: 5 MILLIGRAM, BID
     Route: 048
     Dates: start: 20220706
  11. CONSLIFE [Concomitant]
     Indication: Prophylaxis
     Dosage: 2 TAB, HS
     Route: 048
     Dates: start: 20220608

REACTIONS (12)
  - COVID-19 pneumonia [Recovered/Resolved]
  - Acute respiratory failure [Recovered/Resolved]
  - Septic shock [Recovered/Resolved]
  - Pneumonia [Recovered/Resolved]
  - Klebsiella infection [Unknown]
  - Pseudomonas infection [Unknown]
  - Urinary tract infection pseudomonal [Recovered/Resolved]
  - Candida infection [Unknown]
  - Staphylococcal infection [Unknown]
  - Incision site swelling [Recovered/Resolved]
  - Incision site pain [Recovered/Resolved]
  - Decubitus ulcer [Not Recovered/Not Resolved]

NARRATIVE: CASE EVENT DATE: 20220911
